FAERS Safety Report 8494703-X (Version None)
Quarter: 2012Q3

REPORT INFORMATION
  Report Type: 
  Country: None (occurrence: None)
  Receive Date: 20120709
  Receipt Date: 20120628
  Transmission Date: 20120928
  Serious: Yes (Hospitalization, Other)
  Sender: FDA-Public Use
  Company Number: US-JNJFOC-20120700425

PATIENT
  Sex: Male
  Weight: 117.94 kg

DRUGS (1)
  1. REMICADE [Suspect]
     Indication: ARTHRITIS
     Route: 042
     Dates: start: 20120101, end: 20120608

REACTIONS (3)
  - CARDIAC VALVE DISEASE [None]
  - FALL [None]
  - CORONARY ARTERY OCCLUSION [None]
